FAERS Safety Report 8779246 (Version 1)
Quarter: 2012Q4

REPORT INFORMATION
  Report Type: Report from Study
  Country: US (occurrence: US)
  Receive Date: 20120912
  Receipt Date: 20120912
  Transmission Date: 20130627
  Serious: No
  Sender: FDA-Public Use
  Company Number: US-009507513-1208USA001287

PATIENT

DRUGS (4)
  1. VICTRELIS [Suspect]
     Dosage: 800 mg, tid
     Route: 048
  2. REBETOL [Suspect]
     Dosage: 200 mg, UNK
  3. PEGASYS [Suspect]
     Dosage: 180 MCG/M
  4. AMBIEN [Concomitant]
     Dosage: 5 mg, UNK

REACTIONS (1)
  - Anaemia [Unknown]
